FAERS Safety Report 14038404 (Version 2)
Quarter: 2017Q4

REPORT INFORMATION
  Report Type: Spontaneous
  Country: JP (occurrence: JP)
  Receive Date: 20171004
  Receipt Date: 20171004
  Transmission Date: 20180321
  Serious: Yes (Other)
  Sender: FDA-Public Use
  Company Number: JP-ROCHE-1997362

PATIENT
  Age: 20 Year
  Sex: Female

DRUGS (2)
  1. RITUXAN [Suspect]
     Active Substance: RITUXIMAB
     Indication: HENOCH-SCHONLEIN PURPURA
     Dosage: 10 MG/ML
     Route: 041
     Dates: start: 20170814
  2. ENDOXAN [Concomitant]
     Active Substance: CYCLOPHOSPHAMIDE
     Indication: HENOCH-SCHONLEIN PURPURA
     Route: 042

REACTIONS (4)
  - Off label use [Unknown]
  - Intentional product use issue [Unknown]
  - Monoplegia [Unknown]
  - Depressed mood [Unknown]
